FAERS Safety Report 6655771-0 (Version None)
Quarter: 2010Q1

REPORT INFORMATION
  Report Type: 
  Country: None (occurrence: None)
  Receive Date: 20100329
  Receipt Date: 20100315
  Transmission Date: 20100710
  Serious: Yes (Death, Other)
  Sender: FDA-Public Use
  Company Number: CH-ROCHE-692028

PATIENT
  Age: 62 Year
  Sex: Male

DRUGS (6)
  1. MYCOPHENOLATE MOFETIL [Suspect]
     Route: 065
  2. VALGANCICLOVIR HCL [Suspect]
     Indication: CYTOMEGALOVIRUS INFECTION
     Route: 048
  3. VALGANCICLOVIR HCL [Suspect]
     Route: 048
  4. VALGANCICLOVIR HCL [Suspect]
     Route: 048
  5. PREDNISONE [Suspect]
     Route: 065
  6. TACROLIMUS [Suspect]
     Dosage: REPORTED: TACROLIMUS 8 MCG/L.
     Route: 065

REACTIONS (7)
  - CARDIAC FAILURE [None]
  - CYTOMEGALOVIRUS COLITIS [None]
  - CYTOMEGALOVIRUS SYNDROME [None]
  - HEPATITIS [None]
  - MULTI-ORGAN FAILURE [None]
  - RESPIRATORY FAILURE [None]
  - SEPTIC SHOCK [None]
